FAERS Safety Report 12545075 (Version 14)
Quarter: 2018Q3

REPORT INFORMATION
  Report Type: Report from Study
  Country: US (occurrence: US)
  Receive Date: 20160711
  Receipt Date: 20180829
  Transmission Date: 20181010
  Serious: Yes (Hospitalization, Other)
  Sender: FDA-Public Use
  Company Number: US-JNJFOC-20160703638

PATIENT
  Age: 75 Year
  Sex: Male

DRUGS (1)
  1. IMBRUVICA [Suspect]
     Active Substance: IBRUTINIB
     Indication: CHRONIC LYMPHOCYTIC LEUKAEMIA
     Route: 048
     Dates: start: 20151118, end: 20180516

REACTIONS (20)
  - Hallucination [Not Recovered/Not Resolved]
  - Bone marrow failure [Unknown]
  - Cerebral haematoma [Recovered/Resolved]
  - Insomnia [Unknown]
  - Urinary tract stoma complication [Recovering/Resolving]
  - Asthenia [Unknown]
  - Dehydration [Unknown]
  - Speech disorder [Not Recovered/Not Resolved]
  - Haemoglobin decreased [Recovering/Resolving]
  - Rash [Not Recovered/Not Resolved]
  - Panic attack [Unknown]
  - Urinary tract infection fungal [Unknown]
  - Haemorrhage intracranial [Unknown]
  - Dysphagia [Unknown]
  - Hypersomnia [Unknown]
  - Fatigue [Unknown]
  - Fall [Not Recovered/Not Resolved]
  - Dementia [Unknown]
  - Brain injury [Not Recovered/Not Resolved]
  - Kidney infection [Recovering/Resolving]

NARRATIVE: CASE EVENT DATE: 2016
